FAERS Safety Report 7742618-4 (Version None)
Quarter: 2011Q3

REPORT INFORMATION
  Report Type: 
  Country: None (occurrence: None)
  Receive Date: 20110912
  Receipt Date: 20110909
  Transmission Date: 20111222
  Serious: Yes (Death, Hospitalization)
  Sender: FDA-Public Use
  Company Number: PHHY2009VE53251

PATIENT
  Sex: Female

DRUGS (2)
  1. RISPERIDONE [Concomitant]
     Route: 048
  2. EXELON [Suspect]
     Indication: DEMENTIA ALZHEIMER'S TYPE
     Dosage: 6 MG, DAILY
     Dates: start: 20060101

REACTIONS (3)
  - RESPIRATORY ARREST [None]
  - FALL [None]
  - FEMUR FRACTURE [None]
